FAERS Safety Report 6936346-2 (Version None)
Quarter: 2010Q3

REPORT INFORMATION
  Report Type: 
  Country: None (occurrence: None)
  Receive Date: 20100818
  Receipt Date: 20091019
  Transmission Date: 20110219
  Serious: Yes (Hospitalization)
  Sender: FDA-Public Use
  Company Number: 2009-190399-NL

PATIENT
  Age: 34 Year
  Sex: Female
  Weight: 72.6 kg

DRUGS (2)
  1. NUVARING [Suspect]
     Indication: MENSTRUATION IRREGULAR
     Dates: start: 20070209, end: 20070223
  2. METFORMIN [Concomitant]

REACTIONS (28)
  - AMNESIA [None]
  - BALANCE DISORDER [None]
  - BRONCHITIS [None]
  - COAGULATION FACTOR VIII LEVEL INCREASED [None]
  - CONSTIPATION [None]
  - DRUG INTOLERANCE [None]
  - HEADACHE [None]
  - HYPERACUSIS [None]
  - IMPAIRED DRIVING ABILITY [None]
  - IMPAIRED WORK ABILITY [None]
  - INCORRECT DOSE ADMINISTERED [None]
  - INFLAMMATION [None]
  - INFUSION SITE THROMBOSIS [None]
  - INTERNATIONAL NORMALISED RATIO DECREASED [None]
  - INTERNATIONAL NORMALISED RATIO INCREASED [None]
  - INTRACRANIAL VENOUS SINUS THROMBOSIS [None]
  - MASTOID DISORDER [None]
  - OVARIAN CYST RUPTURED [None]
  - PAIN [None]
  - PARANASAL CYST [None]
  - PARANASAL SINUS MUCOSAL HYPERTROPHY [None]
  - PRURITUS [None]
  - SINUS POLYP [None]
  - SINUSITIS [None]
  - THORACIC VERTEBRAL FRACTURE [None]
  - TRANSVERSE SINUS THROMBOSIS [None]
  - VISUAL IMPAIRMENT [None]
  - VOMITING [None]
